FAERS Safety Report 18353583 (Version 1)
Quarter: 2020Q4

REPORT INFORMATION
  Report Type: Other
  Country: DE (occurrence: DE)
  Receive Date: 20201007
  Receipt Date: 20201007
  Transmission Date: 20210114
  Serious: Yes (Hospitalization)
  Sender: FDA-Public Use
  Company Number: DE-ROCHE-2687274

PATIENT
  Age: 72 Year
  Sex: Male

DRUGS (5)
  1. RITUXIMAB. [Suspect]
     Active Substance: RITUXIMAB
     Route: 065
     Dates: start: 201709, end: 201908
  2. RITUXIMAB. [Suspect]
     Active Substance: RITUXIMAB
     Indication: MARGINAL ZONE LYMPHOMA
     Dosage: 6 CYCLE
     Route: 065
     Dates: start: 2017
  3. AMPICILLIN [Concomitant]
     Active Substance: AMPICILLIN
  4. SULBACTAM [Concomitant]
     Active Substance: SULBACTAM
  5. BENDAMUSTINE [Suspect]
     Active Substance: BENDAMUSTINE
     Indication: MARGINAL ZONE LYMPHOMA
     Dosage: 6 CYCLE
     Route: 065
     Dates: start: 2017

REACTIONS (1)
  - COVID-19 [Recovered/Resolved]
